FAERS Safety Report 8971098 (Version 1)
Quarter: 2012Q4

REPORT INFORMATION
  Report Type: 
  Country: DE (occurrence: DE)
  Receive Date: 20121217
  Receipt Date: 20121217
  Transmission Date: 20130627
  Serious: Yes (Hospitalization)
  Sender: FDA-Public Use
  Company Number: DE-PFIZER INC-2012315736

PATIENT
  Age: 57 Year
  Sex: Male
  Weight: 110 kg

DRUGS (10)
  1. GENOTROPIN [Suspect]
     Indication: GROWTH HORMONE DEFICIENCY
     Dosage: 0.15 mg, 1x/day,7 injections/week
     Route: 058
     Dates: start: 20080213
  2. DESMOPRESSIN [Concomitant]
     Indication: ADH DECREASED
     Dosage: UNK
     Dates: start: 19990827
  3. LEVOTHYROXINE [Concomitant]
     Indication: THYROID DISORDER
     Dosage: UNK
     Dates: start: 19990827
  4. TESTOSTERONE ENANTATE [Concomitant]
     Indication: LUTEINISING HORMONE DEFICIENCY
     Dosage: UNK
     Dates: start: 19991013
  5. TESTOSTERONE ENANTATE [Concomitant]
     Indication: FOLLICLE-STIMULATING HORMONE DEFICIENCY
  6. HYDROCORTISONE [Concomitant]
     Indication: ACTH DECREASED
     Dosage: UNK
     Dates: start: 19991208
  7. CABASERIL [Concomitant]
     Indication: HYPERPROLACTINAEMIA
     Dosage: UNK
     Dates: start: 20000607
  8. NEXIUM [Concomitant]
     Indication: GASTRIC DISORDER
     Dosage: UNK
     Dates: start: 20000701
  9. DHEA [Concomitant]
     Indication: ACTH DECREASED
     Dosage: UNK
     Dates: start: 20020918
  10. VIGANTOLETTEN ^BAYER^ [Concomitant]
     Indication: OSTEOPOROSIS
     Dosage: UNK
     Dates: start: 20020918

REACTIONS (1)
  - Eye disorder [Unknown]
